FAERS Safety Report 19503214 (Version 1)
Quarter: 2021Q3

REPORT INFORMATION
  Report Type: Spontaneous
  Country: US (occurrence: US)
  Receive Date: 20210707
  Receipt Date: 20210707
  Transmission Date: 20211014
  Serious: No
  Sender: FDA-Public Use
  Company Number: US-P+L DEVELOPMENTS OF NEWYORK CORPORATION-2113542

PATIENT
  Sex: Female

DRUGS (2)
  1. NEUTROGENA ACNE PROOFING CLEANSER [Concomitant]
     Active Substance: SALICYLIC ACID
     Route: 065
  2. ADAPALENE. [Suspect]
     Active Substance: ADAPALENE
     Indication: ACNE
     Route: 062
     Dates: start: 20210430, end: 20210501

REACTIONS (4)
  - Erythema [Recovered/Resolved]
  - Condition aggravated [Not Recovered/Not Resolved]
  - Application site dryness [Recovered/Resolved]
  - Agitation [Not Recovered/Not Resolved]

NARRATIVE: CASE EVENT DATE: 20210502
